FAERS Safety Report 23419813 (Version 2)
Quarter: 2024Q3

REPORT INFORMATION
  Report Type: Spontaneous
  Country: US (occurrence: US)
  Receive Date: 20240119
  Receipt Date: 20240913
  Transmission Date: 20241017
  Serious: No
  Sender: ABBVIE
  Company Number: US-ABBVIE-5585220

PATIENT
  Age: 33 Year
  Sex: Female
  Weight: 69.4 kg

DRUGS (5)
  1. LILETTA [Suspect]
     Active Substance: LEVONORGESTREL
     Indication: Contraception
     Dosage: TIME INTERVAL: AS NECESSARY: 52MG
     Route: 015
     Dates: start: 20240108, end: 202401
  2. ACCRUFER [Concomitant]
     Active Substance: FERRIC MALTOL
     Indication: Product used for unknown indication
     Dosage: FORM OF STRENGHTH-30 MG? FOR 30 DAYS
     Route: 048
  3. IBUPROFEN [Concomitant]
     Active Substance: IBUPROFEN
     Indication: Product used for unknown indication
     Dosage: TIME INTERVAL: 0.33333333 DAYS: 800 MG
     Route: 048
  4. INTEGRA PLUS [Concomitant]
     Active Substance: ASCORBIC ACID\BIOTIN\CALCIUM PANTOTHENATE\FERROUS ASPARTO GLYCINATE\FERROUS FUMARATE\FOLIC ACID\NIAC
     Indication: Product used for unknown indication
     Dosage: 1FORM OF STRENGH-25 MG?IRON 1 MG
     Route: 048
  5. ONDANSETRON [Concomitant]
     Active Substance: ONDANSETRON
     Indication: Product used for unknown indication
     Dosage: FORM OF STRENGH-4 MG?DISSOLVE 1 TABLET EVERY 6 HOURS AS NEEDED
     Route: 048

REACTIONS (1)
  - Procedural haemorrhage [Unknown]

NARRATIVE: CASE EVENT DATE: 20240108
